FAERS Safety Report 14843407 (Version 1)
Quarter: 2018Q2

REPORT INFORMATION
  Report Type: Spontaneous
  Country: US (occurrence: US)
  Receive Date: 20180503
  Receipt Date: 20180503
  Transmission Date: 20180711
  Serious: Yes (Other)
  Sender: FDA-Public Use
  Company Number: US-IMPAX LABORATORIES, INC-2018-IPXL-01417

PATIENT
  Age: 72 Year
  Sex: Female

DRUGS (1)
  1. RYTARY [Suspect]
     Active Substance: CARBIDOPA\LEVODOPA
     Indication: PARKINSON^S DISEASE
     Dosage: 36.25/145 MG, TWO CAPSULES THREE TIMES A DAY
     Route: 065

REACTIONS (6)
  - Blood pressure increased [Unknown]
  - Feeling abnormal [Unknown]
  - Hypoacusis [Unknown]
  - Dizziness [Unknown]
  - Nausea [Unknown]
  - Loss of consciousness [Unknown]
